FAERS Safety Report 13699407 (Version 2)
Quarter: 2017Q2

REPORT INFORMATION
  Report Type: Spontaneous
  Country: IT (occurrence: IT)
  Receive Date: 20170628
  Receipt Date: 20170629
  Transmission Date: 20170830
  Serious: Yes (Hospitalization, Other)
  Sender: FDA-Public Use
  Company Number: PHHY2017IT090516

PATIENT
  Age: 65 Year
  Sex: Male
  Weight: 79 kg

DRUGS (3)
  1. VECTIBIX [Suspect]
     Active Substance: PANITUMUMAB
     Indication: COLON CANCER METASTATIC
     Dosage: 475 MG, Q2W
     Route: 042
     Dates: start: 20160531
  2. OXALIPLATIN. [Suspect]
     Active Substance: OXALIPLATIN
     Indication: COLON CANCER METASTATIC
     Dosage: UNK UNK, Q2W
     Route: 042
     Dates: start: 20160531, end: 20161104
  3. 5 FLUOROURACIL [Suspect]
     Active Substance: FLUOROURACIL
     Indication: COLON CANCER METASTATIC
     Dosage: UNK, Q2W
     Route: 042
     Dates: start: 20160531, end: 20161104

REACTIONS (5)
  - Dermatitis acneiform [Recovered/Resolved]
  - Intestinal obstruction [Recovered/Resolved]
  - Decreased appetite [Recovered/Resolved with Sequelae]
  - Nausea [Recovered/Resolved]
  - Vomiting [Recovered/Resolved]

NARRATIVE: CASE EVENT DATE: 20161004
